FAERS Safety Report 14222029 (Version 1)
Quarter: 2017Q4

REPORT INFORMATION
  Report Type: Spontaneous
  Country: US (occurrence: US)
  Receive Date: 20171124
  Receipt Date: 20171124
  Transmission Date: 20180321
  Serious: No
  Sender: FDA-Public Use
  Company Number: US-B.I. PHARMACEUTICALS,INC./RIDGEFIELD-2017-BI-062298

PATIENT
  Sex: Male

DRUGS (9)
  1. PROGRAF [Concomitant]
     Active Substance: TACROLIMUS\TACROLIMUS ANHYDROUS
     Indication: RENAL TRANSPLANT
     Dosage: 1 TABLET 1 TIME DAILY;  FORM STRENGTH: 1 MG; FORMULATION: TABLET
     Route: 048
  2. OMEGA 3 [Concomitant]
     Active Substance: OMEGA-3 FATTY ACIDS
     Indication: PRODUCT USED FOR UNKNOWN INDICATION
     Dosage: 1 CAPSULE BID;  FORM STRENGTH: 1 GM; FORMULATION: CAPSULE
     Route: 048
  3. TRAMADOL/ACETAMINOPHEN [Concomitant]
     Active Substance: ACETAMINOPHEN\TRAMADOL
     Indication: ARTHRALGIA
     Dosage: 1 TABLET PRN;  FORM STRENGTH: 37.5 MG / 325 MG; FORMULATION: TABLET
     Route: 048
  4. ELIQUIS [Concomitant]
     Active Substance: APIXABAN
     Indication: ATRIAL FIBRILLATION
     Dosage: 1 TABLETS BID;  FORM STRENGTH: 2.5 MG; FORMULATION: TABLET
     Route: 048
     Dates: start: 2016
  5. GILOTRIF [Suspect]
     Active Substance: AFATINIB
     Indication: LUNG NEOPLASM MALIGNANT
     Dosage: 1 TABLET 1 TIME DAILY;  FORM STRENGTH: 30 MG; FORMULATION: TABLET? ADMINISTRATION CORRECT? YES ?ACTI
     Route: 048
  6. ATENOLOL. [Concomitant]
     Active Substance: ATENOLOL
     Indication: HYPERTENSION
     Dosage: 1 TABLET BID;  FORM STRENGTH: 25 MG; FORMULATION: TABLET
     Route: 048
  7. VITAMIN D [Concomitant]
     Active Substance: CHOLECALCIFEROL
     Indication: PRODUCT USED FOR UNKNOWN INDICATION
     Dosage: 1 TABLET WEEKLY;  FORM STRENGTH: 50000 UNITS; FORMULATION: TABLET
     Route: 048
  8. FOLIC ACID. [Concomitant]
     Active Substance: FOLIC ACID
     Indication: PRODUCT USED FOR UNKNOWN INDICATION
     Dosage: 1 TABLET 1 TIME DAILY;  FORM STRENGTH: 400 MCG; FORMULATION: TABLET
     Route: 048
  9. PREDNISONE. [Concomitant]
     Active Substance: PREDNISONE
     Indication: RENAL TRANSPLANT
     Dosage: 1 TABLET 1 TIME DAILY;  FORM STRENGTH: 7.5 MG; FORMULATION: TABLET
     Route: 048

REACTIONS (12)
  - Lacrimation increased [Not Recovered/Not Resolved]
  - Vision blurred [Not Recovered/Not Resolved]
  - Corneal transplant [Not Recovered/Not Resolved]
  - Eyelash discolouration [Not Recovered/Not Resolved]
  - Clostridium difficile infection [Recovered/Resolved]
  - Hair texture abnormal [Not Recovered/Not Resolved]
  - Onychoclasis [Not Recovered/Not Resolved]
  - Cataract [Recovered/Resolved]
  - Eyelash changes [Not Recovered/Not Resolved]
  - Rhinorrhoea [Not Recovered/Not Resolved]
  - Pain in extremity [Not Recovered/Not Resolved]
  - Diarrhoea [Not Recovered/Not Resolved]

NARRATIVE: CASE EVENT DATE: 2017
